FAERS Safety Report 15755527 (Version 1)
Quarter: 2018Q4

REPORT INFORMATION
  Report Type: Spontaneous
  Country: US (occurrence: US)
  Receive Date: 20181224
  Receipt Date: 20181224
  Transmission Date: 20190205
  Serious: No
  Sender: FDA-Public Use
  Company Number: US-DRREDDYS-USA/USA/18/0100636

PATIENT
  Sex: Female
  Weight: 60 kg

DRUGS (7)
  1. DIVALPROEX [Concomitant]
     Active Substance: DIVALPROEX SODIUM
     Indication: BIPOLAR DISORDER
     Route: 065
  2. EZETIMIBE. [Concomitant]
     Active Substance: EZETIMIBE
     Indication: BLOOD CHOLESTEROL
     Route: 065
  3. PIOGLITAZONE. [Concomitant]
     Active Substance: PIOGLITAZONE
     Indication: BLOOD CHOLESTEROL
     Route: 065
  4. NICOTINE. [Suspect]
     Active Substance: NICOTINE
     Route: 062
     Dates: start: 20180602
  5. TRAZODONE [Concomitant]
     Active Substance: TRAZODONE HYDROCHLORIDE
     Indication: SLEEP DISORDER
     Route: 065
  6. LATUDA [Concomitant]
     Active Substance: LURASIDONE HYDROCHLORIDE
     Indication: DEPRESSION
     Route: 065
  7. NICOTINE. [Suspect]
     Active Substance: NICOTINE
     Indication: SMOKING CESSATION THERAPY
     Route: 062

REACTIONS (4)
  - Treatment noncompliance [Unknown]
  - Nightmare [Unknown]
  - Anxiety [Unknown]
  - Overdose [Unknown]
